FAERS Safety Report 9321883 (Version 5)
Quarter: 2013Q3

REPORT INFORMATION
  Report Type: Spontaneous
  Country: IT (occurrence: IT)
  Receive Date: 20130531
  Receipt Date: 20130717
  Transmission Date: 20140515
  Serious: Yes (Hospitalization)
  Sender: FDA-Public Use
  Company Number: IT-ABBOTT-13X-083-1095442-00

PATIENT
  Age: 43 Year
  Sex: Male

DRUGS (4)
  1. DEPAKIN [Suspect]
     Indication: INTENTIONAL SELF-INJURY
     Dosage: 5600 MILLIGRAM(S) ;TOTAL, EXTENDED RELEASE
     Route: 048
     Dates: start: 20130315, end: 20130315
  2. DEPAKIN [Suspect]
     Route: 048
     Dates: start: 20130315, end: 20130315
  3. TALOFEN [Suspect]
     Indication: INTENTIONAL SELF-INJURY
     Dosage: FORM STRENGTH: 4 G/ 100 ML
     Route: 048
     Dates: start: 20130315, end: 20130315
  4. DELORAZEPAM [Suspect]
     Indication: INTENTIONAL SELF-INJURY
     Route: 048
     Dates: start: 20130315, end: 20130315

REACTIONS (7)
  - Drug abuse [Unknown]
  - Ataxia [Unknown]
  - Speech disorder [Unknown]
  - Psychomotor skills impaired [Unknown]
  - Overdose [Unknown]
  - Dysarthria [Unknown]
  - Sopor [Unknown]
